FAERS Safety Report 24417933 (Version 2)
Quarter: 2024Q4

REPORT INFORMATION
  Report Type: Spontaneous
  Country: US (occurrence: US)
  Receive Date: 20241009
  Receipt Date: 20241223
  Transmission Date: 20250115
  Serious: Yes (Hospitalization, Other)
  Sender: APELLIS PHARMACEUTICALS
  Company Number: US-APELLIS PHARMACEUTICALS-APL-2023-003285

PATIENT
  Weight: 85.1 kg

DRUGS (15)
  1. SYFOVRE [Suspect]
     Active Substance: PEGCETACOPLAN
     Indication: Neovascular age-related macular degeneration
     Dosage: 15 MILLIGRAM OS?15 MG/0.1ML
     Route: 031
     Dates: start: 20230512, end: 20230710
  2. SYFOVRE [Suspect]
     Active Substance: PEGCETACOPLAN
     Indication: Neovascular age-related macular degeneration
     Dosage: 15 MILLIGRAM OS?15 MG/0.1ML
     Route: 031
     Dates: start: 20230512, end: 20230710
  3. SYFOVRE [Suspect]
     Active Substance: PEGCETACOPLAN
     Indication: Dry age-related macular degeneration
  4. LUCENTIS [Concomitant]
     Active Substance: RANIBIZUMAB
     Indication: Neovascular age-related macular degeneration
     Dosage: 0.5 MILLIGRAM
     Route: 031
     Dates: start: 20191017, end: 20231110
  5. ALPRAZOLAM [Concomitant]
     Active Substance: ALPRAZOLAM
     Indication: Sleep disorder
     Dosage: 20 MILLIGRAM, QD
     Route: 048
  6. FUROSEMIDE [Concomitant]
     Active Substance: FUROSEMIDE
     Indication: Product used for unknown indication
     Dosage: 20 MILLIGRAM, QD
  7. COZAAR [Concomitant]
     Active Substance: LOSARTAN POTASSIUM
     Indication: Product used for unknown indication
     Dosage: 100 MILLIGRAM, QD
  8. METOPROLOL [Concomitant]
     Active Substance: METOPROLOL
     Indication: Product used for unknown indication
     Dosage: 25 MILLIGRAM, QD
  9. OMEPRAZOLE [Concomitant]
     Active Substance: OMEPRAZOLE
     Indication: Product used for unknown indication
     Dosage: 20 MILLIGRAM, QD
  10. ZOLPIDEM [Concomitant]
     Active Substance: ZOLPIDEM TARTRATE
     Indication: Product used for unknown indication
     Dosage: 6.25 MILLIGRAM, QD
  11. COSOPT [Concomitant]
     Active Substance: DORZOLAMIDE HYDROCHLORIDE\TIMOLOL MALEATE
     Indication: Product used for unknown indication
     Dosage: 1 GTT DROPS, BID (OS)
     Route: 047
  12. PRED FORTE [Concomitant]
     Active Substance: PREDNISOLONE ACETATE
     Indication: Product used for unknown indication
     Dosage: 1 GTT DROPS, QD (OD)
     Route: 047
  13. ZIOPTAN [Concomitant]
     Active Substance: TAFLUPROST
     Indication: Product used for unknown indication
     Dosage: 1 GTT DROPS  QHS  (OS)
     Route: 047
  14. LOSARTAN [Concomitant]
     Active Substance: LOSARTAN
     Indication: Product used for unknown indication
  15. METOPROLOL [Concomitant]
     Active Substance: METOPROLOL
     Indication: Product used for unknown indication

REACTIONS (9)
  - Anaphylactic shock [Recovered/Resolved with Sequelae]
  - Hypersensitivity [Recovered/Resolved]
  - Hyponatraemia [Recovered/Resolved]
  - Acute kidney injury [Recovered/Resolved]
  - Metabolic acidosis [Recovered/Resolved]
  - Retinal tear [Recovered/Resolved]
  - Leukocytosis [Recovered/Resolved]
  - Vitreous floaters [Recovered/Resolved]
  - Ocular procedural complication [Unknown]

NARRATIVE: CASE EVENT DATE: 20230512
